FAERS Safety Report 7779336-2 (Version None)
Quarter: 2011Q3

REPORT INFORMATION
  Report Type: 
  Country: None (occurrence: None)
  Receive Date: 20110926
  Receipt Date: 20110915
  Transmission Date: 20111222
  Serious: Yes (Disabling)
  Sender: FDA-Public Use
  Company Number: US-ASTRAZENECA-2011SE55717

PATIENT
  Sex: Female

DRUGS (13)
  1. LACTULOSE [Concomitant]
  2. ACID PILL [Concomitant]
     Dosage: EVERY OTHER DAY
  3. HYDROCODONE [Concomitant]
  4. ESSGIC [Concomitant]
  5. CYMBALTA [Concomitant]
  6. SIMVASTATIN [Concomitant]
  7. NEXIUM [Suspect]
     Route: 048
  8. HYDROXYZ [Concomitant]
  9. ESTRADIOL [Concomitant]
  10. ASPIRON [Concomitant]
  11. DICLOFENAC [Concomitant]
  12. CLONAZEPAM [Concomitant]
  13. CYCLOBENAZ [Concomitant]

REACTIONS (4)
  - ACCIDENT AT WORK [None]
  - WRONG DRUG ADMINISTERED [None]
  - LOSS OF EMPLOYMENT [None]
  - DISABILITY [None]
